FAERS Safety Report 5040451-8 (Version None)
Quarter: 2006Q2

REPORT INFORMATION
  Report Type: 
  Country: None (occurrence: None)
  Receive Date: 20060627
  Receipt Date: 20060627
  Transmission Date: 20061013
  Serious: Yes (Other)
  Sender: FDA-Public Use
  Company Number: None

PATIENT
  Age: 17 Year
  Sex: Female
  Weight: 58.0604 kg

DRUGS (1)
  1. CECLOR [Suspect]
     Indication: PHARYNGOLARYNGEAL PAIN
     Dosage: UNSURE PO
     Route: 048
     Dates: start: 20060315, end: 20060315

REACTIONS (4)
  - AURICULAR SWELLING [None]
  - OEDEMA PERIPHERAL [None]
  - PRURITUS [None]
  - SWELLING FACE [None]
